FAERS Safety Report 6856269-7 (Version None)
Quarter: 2010Q3

REPORT INFORMATION
  Report Type: 
  Country: None (occurrence: None)
  Receive Date: 20100719
  Receipt Date: 20100706
  Transmission Date: 20110219
  Serious: Yes (Other)
  Sender: FDA-Public Use
  Company Number: PHHY2010CL25127

PATIENT
  Sex: Female

DRUGS (3)
  1. GLEEVEC [Suspect]
     Indication: CHRONIC MYELOID LEUKAEMIA
     Dosage: UNK
     Route: 048
     Dates: start: 20020101
  2. GLEEVEC [Suspect]
     Dosage: 300 MG/DAY
     Dates: start: 20050101
  3. GLEEVEC [Suspect]
     Dosage: 400 MG/DAY
     Dates: start: 20070101

REACTIONS (4)
  - BONE MARROW FAILURE [None]
  - CHROMOSOME ANALYSIS ABNORMAL [None]
  - MYELODYSPLASTIC SYNDROME [None]
  - PANCYTOPENIA [None]
